FAERS Safety Report 19251973 (Version 2)
Quarter: 2021Q2

REPORT INFORMATION
  Report Type: Spontaneous
  Country: US (occurrence: US)
  Receive Date: 20210513
  Receipt Date: 20210602
  Transmission Date: 20210717
  Serious: Yes (Other)
  Sender: FDA-Public Use
  Company Number: US-PFIZER INC-2021493300

PATIENT
  Age: 61 Year
  Sex: Male

DRUGS (2)
  1. HYDROCORTISONE. [Suspect]
     Active Substance: HYDROCORTISONE
     Indication: ADRENAL INSUFFICIENCY
     Dosage: UNK
     Dates: start: 2019
  2. LEVOTHYROXINE SODIUM. [Suspect]
     Active Substance: LEVOTHYROXINE SODIUM
     Indication: HYPOTHYROIDISM
     Dosage: LOW?DOSE
     Dates: start: 2019

REACTIONS (2)
  - Diabetes insipidus [Recovering/Resolving]
  - Unmasking of previously unidentified disease [Recovering/Resolving]

NARRATIVE: CASE EVENT DATE: 2019
